FAERS Safety Report 9648055 (Version 1)
Quarter: 2013Q4

REPORT INFORMATION
  Report Type: Spontaneous
  Country: US (occurrence: US)
  Receive Date: 20131028
  Receipt Date: 20131028
  Transmission Date: 20140711
  Serious: No
  Sender: FDA-Public Use
  Company Number: US-PFIZER INC-2013303921

PATIENT
  Sex: Female

DRUGS (1)
  1. ADVIL [Suspect]
     Indication: ARTHRALGIA
     Dosage: 400 MG, (TWO TABLETS OF 200MG IN MORNING AND TWO TABLETS OF 200MG AT NIGHT), TWO TIMES A DAY
     Route: 048
     Dates: start: 20131018, end: 20131021

REACTIONS (3)
  - Abdominal discomfort [Recovered/Resolved]
  - Abdominal tenderness [Recovered/Resolved]
  - Malaise [Recovered/Resolved]
